FAERS Safety Report 9252119 (Version 1)
Quarter: 2013Q1

REPORT INFORMATION
  Report Type: Spontaneous
  Country: US (occurrence: None)
  Receive Date: 20130305
  Receipt Date: 20130305
  Transmission Date: 20140127
  Serious: Yes (Other)
  Sender: FDA-Public Use
  Company Number: 163-21880-12090952

PATIENT
  Age: 66 Year
  Sex: Male
  Weight: 79.83 kg

DRUGS (3)
  1. REVLIMID [Suspect]
     Indication: PLASMA CELL MYELOMA
     Dosage: 21 IN 21 D
     Route: 048
     Dates: start: 20070814
  2. ASPIRIN (ACETYLSALICYLIC ACID) [Suspect]
  3. MULTIVITAMIN [Suspect]

REACTIONS (1)
  - Muscle spasms [None]
